FAERS Safety Report 5188293-7 (Version None)
Quarter: 2006Q4

REPORT INFORMATION
  Report Type: 
  Country: None (occurrence: None)
  Receive Date: 20061221
  Receipt Date: 20061218
  Transmission Date: 20070319
  Serious: Yes (Hospitalization, Other)
  Sender: FDA-Public Use
  Company Number: PHFR2006GB02399

PATIENT
  Age: 30 Year
  Sex: Female

DRUGS (7)
  1. ACYCLOVIR [Suspect]
     Indication: HERPES ZOSTER
     Dosage: 200MG PER DAY
     Dates: start: 20060801, end: 20060805
  2. CLOZARIL [Suspect]
     Indication: SCHIZOPHRENIA
     Route: 048
     Dates: start: 20050124
  3. AMISULPRIDE [Concomitant]
     Dosage: 250MG FOUR TIMES PER DAY
     Route: 048
  4. PIRENZEPINE [Concomitant]
     Dosage: 50MG TWICE PER DAY
  5. TOLTERODINE [Concomitant]
     Dosage: 4MG FOUR TIMES PER DAY
  6. TOPIRAMATE [Concomitant]
     Indication: EPILEPSY
     Dosage: 150MG TWICE PER DAY
  7. VALPROATE SODIUM [Concomitant]
     Dosage: 500MG THREE TIMES PER DAY

REACTIONS (8)
  - BODY MASS INDEX INCREASED [None]
  - HALLUCINATIONS, MIXED [None]
  - HERPES ZOSTER [None]
  - LETHARGY [None]
  - MENTAL IMPAIRMENT [None]
  - MOOD ALTERED [None]
  - OVERWEIGHT [None]
  - STRESS [None]
